FAERS Safety Report 17092810 (Version 2)
Quarter: 2019Q4

REPORT INFORMATION
  Report Type: Report from Study
  Country: US (occurrence: US)
  Receive Date: 20191129
  Receipt Date: 20191203
  Transmission Date: 20200122
  Serious: Yes (Other)
  Sender: FDA-Public Use
  Company Number: US-PFIZER INC-2019512461

PATIENT

DRUGS (3)
  1. AMPICILLIN SODIUM. [Concomitant]
     Active Substance: AMPICILLIN SODIUM
     Indication: NECROTISING COLITIS
     Dosage: UNK
     Route: 042
  2. CLINDAMYCIN. [Suspect]
     Active Substance: CLINDAMYCIN
     Indication: NECROTISING COLITIS
     Dosage: 20 MG/KG, 3X/DAY
     Route: 042
  3. GENTAMICIN SULFATE. [Concomitant]
     Active Substance: GENTAMICIN SULFATE
     Indication: NECROTISING COLITIS
     Dosage: UNK

REACTIONS (1)
  - Intestinal stenosis [Unknown]
